FAERS Safety Report 25396465 (Version 3)
Quarter: 2025Q3

REPORT INFORMATION
  Report Type: Spontaneous
  Country: ZA (occurrence: ZA)
  Receive Date: 20250604
  Receipt Date: 20250710
  Transmission Date: 20251020
  Serious: Yes (Other)
  Sender: TAKEDA
  Company Number: ZA-TAKEDA-2025TUS050551

PATIENT
  Age: 61 Year
  Sex: Female
  Weight: 58 kg

DRUGS (8)
  1. ALUNBRIG [Suspect]
     Active Substance: BRIGATINIB
     Indication: Lung neoplasm malignant
  2. ALUNBRIG [Suspect]
     Active Substance: BRIGATINIB
     Indication: Metastases to bone
  3. ALUNBRIG [Suspect]
     Active Substance: BRIGATINIB
     Dosage: 180 MILLIGRAM, MONTHLY
     Dates: start: 20241212
  4. ZOLEDRONIC ACID [Concomitant]
     Active Substance: ZOLEDRONIC ACID
     Indication: Metastases to bone
     Dosage: UNK UNK, MONTHLY
  5. ZOLEDRONIC ACID [Concomitant]
     Active Substance: ZOLEDRONIC ACID
     Dosage: UNK UNK, Q3MONTHS
  6. VENLAFAXINE HYDROCHLORIDE [Concomitant]
     Active Substance: VENLAFAXINE HYDROCHLORIDE
     Indication: Antidepressant therapy
     Dosage: 37.5 MILLIGRAM, QD
  7. AMBRISENTAN [Concomitant]
     Active Substance: AMBRISENTAN
     Indication: Hypertension
     Dosage: 20 MILLIGRAM, BID
  8. Betacor [Concomitant]
     Indication: Hypertension
     Dosage: 5 MILLIGRAM, QD

REACTIONS (4)
  - Hypertension [Recovering/Resolving]
  - Compression fracture [Unknown]
  - Headache [Recovering/Resolving]
  - Dysphagia [Unknown]
